FAERS Safety Report 20422762 (Version 2)
Quarter: 2022Q3

REPORT INFORMATION
  Report Type: Spontaneous
  Country: US (occurrence: US)
  Receive Date: 20220203
  Receipt Date: 20220811
  Transmission Date: 20221027
  Serious: No
  Sender: FDA-Public Use
  Company Number: US-AURINIA PHARMACEUTICALS INC.-AUR-000886

PATIENT
  Sex: Female

DRUGS (1)
  1. LUPKYNIS [Suspect]
     Active Substance: VOCLOSPORIN
     Indication: Lupus nephritis
     Dosage: 23.7 MILLIGRAM, BID
     Route: 048
     Dates: start: 20210605

REACTIONS (10)
  - Myalgia [Unknown]
  - Proteinuria [Unknown]
  - Nocturia [Unknown]
  - Polyuria [Unknown]
  - Laboratory test abnormal [Unknown]
  - Arthralgia [Not Recovered/Not Resolved]
  - Hypertension [Unknown]
  - Alopecia [Unknown]
  - Product dose omission issue [Unknown]
  - Product packaging difficult to open [Unknown]
